FAERS Safety Report 21388454 (Version 1)
Quarter: 2022Q3

REPORT INFORMATION
  Report Type: Spontaneous
  Country: RS (occurrence: RS)
  Receive Date: 20220928
  Receipt Date: 20220928
  Transmission Date: 20221027
  Serious: Yes (Death, Hospitalization, Other)
  Sender: FDA-Public Use
  Company Number: RS-BAUSCH-BL-2022-022541

PATIENT
  Age: 81 Year
  Sex: Female

DRUGS (1)
  1. DICLOFENAC SODIUM [Suspect]
     Active Substance: DICLOFENAC SODIUM
     Indication: Osteoporosis
     Dosage: CAPSULE WITH MODIFIED RELEASE
     Route: 065
     Dates: start: 2022

REACTIONS (5)
  - Death [Fatal]
  - Haemoglobin decreased [Unknown]
  - Circulatory collapse [Unknown]
  - Small intestinal haemorrhage [Recovered/Resolved]
  - Anaemia [Unknown]

NARRATIVE: CASE EVENT DATE: 20220101
